FAERS Safety Report 7731150-X (Version None)
Quarter: 2011Q3

REPORT INFORMATION
  Report Type: 
  Country: None (occurrence: None)
  Receive Date: 20110906
  Receipt Date: 20110906
  Transmission Date: 20111222
  Serious: Yes (Life-Threatening, Disabling, Other)
  Sender: FDA-Public Use
  Company Number: None

PATIENT
  Age: 61 Year
  Sex: Female
  Weight: 87.543 kg

DRUGS (1)
  1. VENLAFAXINE HCL EXTENDED-RELEASE [Suspect]
     Indication: DEPRESSION
     Dosage: 150MG
     Route: 048
     Dates: start: 20110801, end: 20110904

REACTIONS (6)
  - DECREASED APPETITE [None]
  - PRODUCT SUBSTITUTION ISSUE [None]
  - PRODUCT QUALITY ISSUE [None]
  - SUICIDAL IDEATION [None]
  - DRUG INEFFECTIVE [None]
  - DEPRESSION [None]
